FAERS Safety Report 5393394-4 (Version None)
Quarter: 2007Q3

REPORT INFORMATION
  Report Type: 
  Country: None (occurrence: None)
  Receive Date: 20070723
  Receipt Date: 20070712
  Transmission Date: 20080115
  Serious: Yes (Other)
  Sender: FDA-Public Use
  Company Number: CA-JNJFOC-20070505955

PATIENT
  Age: 6 Decade

DRUGS (11)
  1. REMICADE [Suspect]
     Route: 042
  2. REMICADE [Suspect]
     Route: 042
  3. REMICADE [Suspect]
     Route: 042
  4. REMICADE [Suspect]
     Indication: CROHN'S DISEASE
     Dosage: 2 INFUSIONS ON UNSPECIFIED DATES.
     Route: 042
  5. PENTASA [Concomitant]
     Route: 048
  6. PREDNISONE [Concomitant]
  7. ASAPHEN [Concomitant]
  8. CALCIUM CHLORIDE [Concomitant]
  9. PREMARIN [Concomitant]
     Indication: HORMONE REPLACEMENT THERAPY
  10. PREVACID [Concomitant]
     Indication: GASTROINTESTINAL DISORDER
  11. SOLU-CORTEF [Concomitant]
     Indication: PREMEDICATION

REACTIONS (2)
  - EYE INFECTION [None]
  - VASCULITIS [None]
